FAERS Safety Report 19100209 (Version 1)
Quarter: 2021Q2

REPORT INFORMATION
  Report Type: Spontaneous
  Country: BE (occurrence: BE)
  Receive Date: 20210407
  Receipt Date: 20210407
  Transmission Date: 20210717
  Serious: Yes (Other)
  Sender: FDA-Public Use
  Company Number: BE-SUN PHARMACEUTICAL INDUSTRIES LTD-2021R1-289584

PATIENT
  Age: 70 Year
  Sex: Female

DRUGS (3)
  1. 5?FLUOROURACIL [Suspect]
     Active Substance: FLUOROURACIL
     Indication: PSEUDOMYXOMA PERITONEI
     Dosage: UNK
     Route: 042
  2. LEUCOVORIN. [Suspect]
     Active Substance: LEUCOVORIN
     Indication: PSEUDOMYXOMA PERITONEI
     Dosage: UNK
     Route: 042
  3. OXALIPLATIN. [Suspect]
     Active Substance: OXALIPLATIN
     Indication: PSEUDOMYXOMA PERITONEI
     Dosage: UNK (460 MG/M2)
     Route: 033

REACTIONS (1)
  - Encapsulating peritoneal sclerosis [Recovering/Resolving]
